FAERS Safety Report 18233530 (Version 10)
Quarter: 2020Q4

REPORT INFORMATION
  Report Type: Spontaneous
  Country: US (occurrence: US)
  Receive Date: 20200904
  Receipt Date: 20201229
  Transmission Date: 20210113
  Serious: No
  Sender: FDA-Public Use
  Company Number: US-PFIZER INC-2020165321

PATIENT
  Age: 46 Year
  Sex: Female
  Weight: 60.78 kg

DRUGS (5)
  1. PREMARIN [Suspect]
     Active Substance: ESTROGENS, CONJUGATED
     Indication: HYSTERECTOMY
     Dosage: 0.625 MG
     Route: 067
     Dates: start: 2017
  2. PREMARIN [Suspect]
     Active Substance: ESTROGENS, CONJUGATED
     Dosage: 0.5 G, ALTERNATE DAY
     Route: 067
     Dates: start: 20201217
  3. PREMARIN [Suspect]
     Active Substance: ESTROGENS, CONJUGATED
     Dosage: APPLY A PEA-SIZED AMOUNT TO EXTERNAL GENITALIA EVERY NIGHT
     Route: 067
     Dates: start: 20201217
  4. PREMARIN [Suspect]
     Active Substance: ESTROGENS, CONJUGATED
     Indication: HYSTERECTOMY
     Dosage: 1.25 MG, 1X/DAY (AT NIGHT)
     Route: 048
     Dates: start: 2017
  5. HUMIRA [Concomitant]
     Active Substance: ADALIMUMAB
     Indication: IMMUNE SYSTEM DISORDER
     Dosage: 40 MG, CYCLIC (EVERY OTHER WEEK)
     Dates: start: 2017

REACTIONS (2)
  - Off label use [Unknown]
  - Headache [Unknown]

NARRATIVE: CASE EVENT DATE: 202012
